FAERS Safety Report 4332377-X (Version None)
Quarter: 2004Q2

REPORT INFORMATION
  Report Type: 
  Country: None (occurrence: None)
  Receive Date: 20040401
  Receipt Date: 20040326
  Transmission Date: 20050107
  Serious: Yes (Death)
  Sender: FDA-Public Use
  Company Number: BE-JNJFOC-20040104746

PATIENT
  Age: 95 Year
  Sex: Female

DRUGS (5)
  1. CISAPRIDE (CISAPRIDE) SUSPENSION [Suspect]
     Indication: GASTROINTESTINAL MOTILITY DISORDER
     Dosage: 20 ML, 2 IN 1 DAY,
     Dates: start: 20030612
  2. AMLODIPINE BESYLATE [Concomitant]
  3. APROVEL (IRBESARTAN) [Concomitant]
  4. AGIOLAX (AGIOLAX) [Concomitant]
  5. ACETAMINOPHEN [Concomitant]

REACTIONS (5)
  - ASCITES [None]
  - BLOOD THYROID STIMULATING HORMONE DECREASED [None]
  - BODY HEIGHT DECREASED [None]
  - BONE DISORDER [None]
  - OVARIAN CANCER [None]
